FAERS Safety Report 7060210-4 (Version None)
Quarter: 2010Q4

REPORT INFORMATION
  Report Type: 
  Country: None (occurrence: None)
  Receive Date: 20101025
  Receipt Date: 20101013
  Transmission Date: 20110411
  Serious: Yes (Death, Other)
  Sender: FDA-Public Use
  Company Number: JP-ROCHE-734238

PATIENT
  Age: 38 Year
  Sex: Male

DRUGS (5)
  1. CELLCEPT [Suspect]
     Indication: PROPHYLAXIS AGAINST TRANSPLANT REJECTION
     Dosage: DOSAGE IS UNCERTAIN
     Route: 048
  2. CELLCEPT [Suspect]
     Dosage: DOSAGE IS UNCERTAIN
     Route: 048
  3. TACROLIMUS [Concomitant]
     Dosage: DOSAGE IS UNCERTAIN
  4. TACROLIMUS [Concomitant]
  5. NEUTROGIN [Concomitant]
     Indication: NEUTROPENIA

REACTIONS (11)
  - ALANINE AMINOTRANSFERASE INCREASED [None]
  - AMMONIA INCREASED [None]
  - ASPARTATE AMINOTRANSFERASE INCREASED [None]
  - ATRIOVENTRICULAR BLOCK COMPLETE [None]
  - CANDIDA TEST POSITIVE [None]
  - CARDIAC FAILURE [None]
  - CONVULSION [None]
  - CYTOMEGALOVIRUS TEST POSITIVE [None]
  - FUNGAL INFECTION [None]
  - LOSS OF CONSCIOUSNESS [None]
  - MULTI-ORGAN FAILURE [None]
